FAERS Safety Report 6963687-5 (Version None)
Quarter: 2010Q3

REPORT INFORMATION
  Report Type: 
  Country: None (occurrence: None)
  Receive Date: 20100902
  Receipt Date: 20100827
  Transmission Date: 20110219
  Serious: Yes (Hospitalization)
  Sender: FDA-Public Use
  Company Number: US-B.I. PHARMACEUTICALS,INC./RIDGEFIELD-2010-BP-08730BP

PATIENT
  Sex: Female

DRUGS (1)
  1. SPIRIVA [Suspect]
     Indication: LUNG NEOPLASM MALIGNANT
     Dosage: 18 MCG
     Route: 055
     Dates: start: 20091001

REACTIONS (2)
  - INTESTINAL OBSTRUCTION [None]
  - LUNG INFECTION [None]
